FAERS Safety Report 11458923 (Version 5)
Quarter: 2018Q1

REPORT INFORMATION
  Report Type: Report from Study
  Country: US (occurrence: US)
  Receive Date: 20150904
  Receipt Date: 20180302
  Transmission Date: 20180508
  Serious: Yes (Hospitalization)
  Sender: FDA-Public Use
  Company Number: US-ACTELION-A-US2015-123320

PATIENT
  Age: 61 Year
  Sex: Male

DRUGS (3)
  1. OPSUMIT [Suspect]
     Active Substance: MACITENTAN
     Indication: PULMONARY ARTERIAL HYPERTENSION
     Dosage: 10 MG, QD
     Route: 048
     Dates: start: 20150806
  2. REVATIO [Concomitant]
     Active Substance: SILDENAFIL CITRATE
  3. MECLIZINE [Concomitant]
     Active Substance: MECLIZINE HYDROCHLORIDE

REACTIONS (14)
  - Fall [Unknown]
  - Nausea [Unknown]
  - Respiration abnormal [Unknown]
  - Abdominal pain lower [Unknown]
  - Heart rate increased [Unknown]
  - Dizziness [Unknown]
  - Head injury [Unknown]
  - Vertigo [Recovering/Resolving]
  - Dyspnoea [Unknown]
  - Blood pressure increased [Unknown]
  - Eye movement disorder [Unknown]
  - Chest injury [Unknown]
  - Drug dose omission [Unknown]
  - Insurance issue [Unknown]

NARRATIVE: CASE EVENT DATE: 20180222
